FAERS Safety Report 4360245-6 (Version None)
Quarter: 2004Q2

REPORT INFORMATION
  Report Type: 
  Country: None (occurrence: None)
  Receive Date: 20040515
  Receipt Date: 20040515
  Transmission Date: 20050107
  Serious: Yes (Hospitalization)
  Sender: FDA-Public Use
  Company Number: None

PATIENT
  Sex: Male
  Weight: 88.7 kg

DRUGS (7)
  1. IMATINIB MESYLATE [Suspect]
     Indication: GLIOBLASTOMA MULTIFORME
     Dosage: 500 MG PO BID
     Route: 048
     Dates: start: 20040423, end: 20040513
  2. HYDROXYUREA [Suspect]
     Indication: GLIOBLASTOMA MULTIFORME
     Dosage: 500 MG PO BID
     Route: 048
     Dates: start: 20040423, end: 20040513
  3. TRILEPTAL [Concomitant]
  4. ZANTAC [Concomitant]
  5. DECADRON [Concomitant]
  6. LOVENOX [Concomitant]
  7. DIOVAN [Concomitant]

REACTIONS (3)
  - BLOOD GLUCOSE INCREASED [None]
  - GENERALISED OEDEMA [None]
  - PLATELET COUNT DECREASED [None]
